FAERS Safety Report 7805272-9 (Version None)
Quarter: 2011Q4

REPORT INFORMATION
  Report Type: 
  Country: None (occurrence: None)
  Receive Date: 20111010
  Receipt Date: 20110927
  Transmission Date: 20120403
  Serious: Yes (Hospitalization, Other)
  Sender: FDA-Public Use
  Company Number: GB-CELGENEUS-167-21880-11093429

PATIENT
  Age: 79 Year
  Sex: Female

DRUGS (4)
  1. GLICLAZIDE [Concomitant]
     Route: 065
  2. LOSARTAN POTASSIUM [Concomitant]
     Route: 065
  3. REVLIMID [Suspect]
     Route: 048
     Dates: start: 20110828, end: 20110913
  4. ATORVASTATIN [Concomitant]
     Route: 065

REACTIONS (6)
  - RESPIRATORY FAILURE [None]
  - PULMONARY FIBROSIS [None]
  - PNEUMONIA [None]
  - RASH [None]
  - DYSPNOEA [None]
  - DIARRHOEA [None]
